FAERS Safety Report 7137777-0 (Version None)
Quarter: 2010Q4

REPORT INFORMATION
  Report Type: 
  Country: None (occurrence: None)
  Receive Date: 20101206
  Receipt Date: 20101202
  Transmission Date: 20110411
  Serious: Yes (Death)
  Sender: FDA-Public Use
  Company Number: PHHY2010BR81956

PATIENT
  Sex: Male

DRUGS (2)
  1. DIOVAN AMLO FIX [Suspect]
  2. DIOVAN TRIPLE [Suspect]
     Dosage: COATED TABLET (160/12.5/5 MG)

REACTIONS (1)
  - DEATH [None]
